FAERS Safety Report 7234054-4 (Version None)
Quarter: 2011Q1

REPORT INFORMATION
  Report Type: 
  Country: None (occurrence: None)
  Receive Date: 20110113
  Receipt Date: 20110113
  Transmission Date: 20110831
  Serious: Yes (Hospitalization)
  Sender: FDA-Public Use
  Company Number: None

PATIENT
  Sex: Female
  Weight: 41.5 kg

DRUGS (2)
  1. CYTARABINE [Suspect]
     Dosage: 15000 MG
  2. PEG-L- ASPARAGINASE (K- H) [Suspect]
     Dosage: 3150 MG

REACTIONS (13)
  - CEREBRAL INFARCTION [None]
  - PYREXIA [None]
  - ABDOMINAL PAIN [None]
  - MENINGITIS [None]
  - NEUTROPENIA [None]
  - VAGINAL HAEMORRHAGE [None]
  - METABOLIC ACIDOSIS [None]
  - PUPILS UNEQUAL [None]
  - FLUID OVERLOAD [None]
  - CONTINUOUS HAEMODIAFILTRATION [None]
  - SEPTIC SHOCK [None]
  - DISSEMINATED INTRAVASCULAR COAGULATION [None]
  - PSEUDOMONAS INFECTION [None]
